FAERS Safety Report 7607005-8 (Version None)
Quarter: 2011Q3

REPORT INFORMATION
  Report Type: 
  Country: None (occurrence: None)
  Receive Date: 20110713
  Receipt Date: 20110707
  Transmission Date: 20111222
  Serious: Yes (Hospitalization, Other)
  Sender: FDA-Public Use
  Company Number: GB-ABBOTT-10P-167-0693303-00

PATIENT
  Sex: Female
  Weight: 91 kg

DRUGS (2)
  1. METHOTREXATE [Concomitant]
     Indication: PRODUCT USED FOR UNKNOWN INDICATION
     Dates: start: 20100329
  2. HUMIRA [Suspect]
     Indication: RHEUMATOID ARTHRITIS
     Route: 058
     Dates: start: 20080916, end: 20100515

REACTIONS (8)
  - LUNG NEOPLASM [None]
  - PLEURAL EFFUSION [None]
  - BRONCHIAL CARCINOMA [None]
  - EMPYEMA [None]
  - HAEMANGIOMA OF SPLEEN [None]
  - ATELECTASIS [None]
  - PLEURAL FIBROSIS [None]
  - METASTASES TO SPLEEN [None]
